FAERS Safety Report 10255558 (Version 1)
Quarter: 2014Q2

REPORT INFORMATION
  Report Type: Spontaneous
  Country: US (occurrence: US)
  Receive Date: 20140624
  Receipt Date: 20140624
  Transmission Date: 20141212
  Serious: Yes (Other)
  Sender: FDA-Public Use
  Company Number: CHPA2014US008435

PATIENT
  Age: 37 Year
  Sex: Female

DRUGS (1)
  1. LAMISIL AF DEFENSE SPRAY POWDER [Suspect]
     Indication: TINEA PEDIS
     Dosage: UNK UNK, ONCE/SINGLE
     Route: 061

REACTIONS (2)
  - Hypersensitivity [Recovered/Resolved]
  - Pruritus generalised [Recovered/Resolved]
